FAERS Safety Report 5982145-8 (Version None)
Quarter: 2008Q4

REPORT INFORMATION
  Report Type: 
  Country: None (occurrence: None)
  Receive Date: 20081203
  Receipt Date: 20081125
  Transmission Date: 20090506
  Serious: Yes (Hospitalization)
  Sender: FDA-Public Use
  Company Number: 2008SP024121

PATIENT
  Age: 57 Year
  Sex: Male

DRUGS (4)
  1. PEG-INTRON [Suspect]
     Indication: HEPATITIS B
     Dosage: SC
     Route: 058
     Dates: start: 20080211, end: 20080601
  2. PEG-INTRON [Suspect]
     Indication: HEPATITIS C
     Dosage: SC
     Route: 058
     Dates: start: 20080211, end: 20080601
  3. RIBAVIRIN [Suspect]
     Indication: HEPATITIS B
     Dosage: PO
     Route: 048
     Dates: start: 20080211, end: 20080601
  4. RIBAVIRIN [Suspect]
     Indication: HEPATITIS C
     Dosage: PO
     Route: 048
     Dates: start: 20080211, end: 20080601

REACTIONS (6)
  - AGEUSIA [None]
  - ALOPECIA [None]
  - EATING DISORDER [None]
  - FEELING ABNORMAL [None]
  - NAIL DISORDER [None]
  - ROSACEA [None]
